FAERS Safety Report 6657817-2 (Version None)
Quarter: 2010Q1

REPORT INFORMATION
  Report Type: 
  Country: None (occurrence: None)
  Receive Date: 20100330
  Receipt Date: 20100317
  Transmission Date: 20100710
  Serious: Yes (Hospitalization, Disabling, Other)
  Sender: FDA-Public Use
  Company Number: US-ELI_LILLY_AND_COMPANY-US200911006360

PATIENT
  Sex: Male
  Weight: 107.94 kg

DRUGS (11)
  1. ZYPREXA [Suspect]
     Indication: SCHIZOPHRENIA, PARANOID TYPE
     Dosage: 1 D/F, UNK
     Route: 065
     Dates: start: 20000621, end: 20000726
  2. ZYPREXA [Suspect]
     Dosage: 10 MG, EACH EVENING
     Dates: start: 20000627, end: 20000701
  3. ZYPREXA [Suspect]
     Dosage: 20 MG, DAILY (1/D)
     Dates: start: 20000701, end: 20071001
  4. PROZAC [Concomitant]
     Dosage: 10 MG, DAILY (1/D)
     Dates: start: 20000621
  5. PROZAC [Concomitant]
     Dosage: 20 MG, UNK
  6. ALPRAZOLAM [Concomitant]
     Dosage: 0.5 MG, UNK
  7. LAMICTAL CD [Concomitant]
     Dosage: 100 MG, UNK
  8. LAMICTAL CD [Concomitant]
     Dosage: 25 MG, UNK
  9. MIRTAZAPINE [Concomitant]
     Dosage: 30 MG, UNK
  10. MIRTAZAPINE [Concomitant]
     Dosage: 15 MG, UNK
  11. MIRTAZAPINE [Concomitant]
     Dosage: 45 MG, UNK

REACTIONS (12)
  - CARDIAC MURMUR [None]
  - HEPATIC STEATOSIS [None]
  - HEPATITIS [None]
  - HYPERLIPIDAEMIA [None]
  - HYPERTENSION [None]
  - PERIPHERAL ARTERIAL OCCLUSIVE DISEASE [None]
  - POLYURIA [None]
  - PRESYNCOPE [None]
  - RENAL MASS [None]
  - SCHIZOAFFECTIVE DISORDER [None]
  - TYPE 2 DIABETES MELLITUS [None]
  - WEIGHT INCREASED [None]
